APPROVED DRUG PRODUCT: TERCONAZOLE
Active Ingredient: TERCONAZOLE
Strength: 80MG
Dosage Form/Route: SUPPOSITORY;VAGINAL
Application: A077149 | Product #001 | TE Code: AB
Applicant: PADAGIS ISRAEL PHARMACEUTICALS LTD
Approved: Mar 17, 2006 | RLD: No | RS: Yes | Type: RX